FAERS Safety Report 7126748-6 (Version None)
Quarter: 2010Q4

REPORT INFORMATION
  Report Type: 
  Country: None (occurrence: None)
  Receive Date: 20101129
  Receipt Date: 20101116
  Transmission Date: 20110411
  Serious: Yes (Hospitalization)
  Sender: FDA-Public Use
  Company Number: FR-MERCK-1011FRA00087

PATIENT
  Age: 66 Year
  Sex: Male

DRUGS (7)
  1. JANUVIA [Suspect]
     Indication: TYPE 2 DIABETES MELLITUS
     Route: 048
     Dates: start: 20090201
  2. ATORVASTATIN CALCIUM [Suspect]
     Route: 048
     Dates: start: 20060601, end: 20100924
  3. METFORMIN [Concomitant]
     Indication: TYPE 2 DIABETES MELLITUS
     Route: 048
     Dates: start: 20050601
  4. PIOGLITAZONE HYDROCHLORIDE [Concomitant]
     Indication: TYPE 2 DIABETES MELLITUS
     Route: 048
     Dates: start: 20051001
  5. PANTOPRAZOLE [Concomitant]
     Route: 048
     Dates: start: 20060301
  6. VALSARTAN [Concomitant]
     Route: 048
     Dates: start: 20091101
  7. ASPIRIN LYSINE [Concomitant]
     Route: 048
     Dates: start: 20100601

REACTIONS (2)
  - DRUG INTERACTION [None]
  - RHABDOMYOLYSIS [None]
